FAERS Safety Report 5335493-9 (Version None)
Quarter: 2007Q2

REPORT INFORMATION
  Report Type: 
  Country: None (occurrence: None)
  Receive Date: 20070521
  Receipt Date: 20070508
  Transmission Date: 20071010
  Serious: Yes (Hospitalization, Other)
  Sender: FDA-Public Use
  Company Number: GXKR2007US04118

PATIENT
  Age: 56 Year
  Sex: Female

DRUGS (18)
  1. CYCLOSPORINE [Suspect]
     Indication: IMMUNOSUPPRESSION
     Dosage: 225 MG, BID
  2. PREDNISONE TAB [Concomitant]
  3. AZATHIOPRINE [Concomitant]
  4. NIFEDIPINE [Concomitant]
  5. LEVOTHYROXINE SODIUM [Concomitant]
  6. CALCITRIOL [Concomitant]
  7. TRIMETHOPRIM [Concomitant]
  8. CLOTRIMAZOLE [Concomitant]
  9. FOLIC ACID [Concomitant]
  10. CALCIUM CARBONATE (CALCIUM CARBONATE) [Concomitant]
  11. MULTIVITAMINS (ASCORBIC ACID, ERGOCALCIFEROL, FOLIC ACID, NICOTINAMIDE [Concomitant]
  12. VITAMIN A [Concomitant]
  13. PNEUMOCOCCAL VACCINE (PNEUMOCOCCAL VACCINE) [Concomitant]
  14. FOLATE SODIUM (FOLATE SODIUM) [Concomitant]
  15. HYDRALAZINE HCL [Concomitant]
  16. FUROSEMIDE [Concomitant]
  17. POTASSIUM SULFATE (POTASSIUM SULFATE) [Concomitant]
  18. ALUMINUM HYDROXIDE (ALUMINUM HYDROXIDE) [Concomitant]

REACTIONS (10)
  - BENIGN NEOPLASM OF THYROID GLAND [None]
  - BLOOD TRIGLYCERIDES INCREASED [None]
  - DIALYSIS [None]
  - HYPERLIPIDAEMIA [None]
  - LOW DENSITY LIPOPROTEIN INCREASED [None]
  - RENAL FAILURE CHRONIC [None]
  - RENAL TRANSPLANT [None]
  - SALPINGECTOMY [None]
  - SMALL INTESTINAL OBSTRUCTION [None]
  - URINARY TRACT INFECTION [None]
